FAERS Safety Report 17771242 (Version 1)
Quarter: 2020Q2

REPORT INFORMATION
  Report Type: Spontaneous
  Country: US (occurrence: US)
  Receive Date: 20200512
  Receipt Date: 20200512
  Transmission Date: 20200714
  Serious: No
  Sender: FDA-Public Use
  Company Number: US-PERRIGO-19US007418

PATIENT
  Sex: Female

DRUGS (1)
  1. MICONAZOLE 3 COMBINATION PACK [Suspect]
     Active Substance: MICONAZOLE NITRATE
     Indication: PRODUCT USED FOR UNKNOWN INDICATION
     Dosage: 200 MG, SINGLE
     Route: 067
     Dates: start: 20190614, end: 20190614

REACTIONS (9)
  - Swelling [Recovered/Resolved]
  - Vulvovaginal swelling [Recovered/Resolved]
  - Hypersensitivity [Recovered/Resolved]
  - Vulvovaginal burning sensation [Recovered/Resolved]
  - Pain [Recovered/Resolved]
  - Vulvovaginal erythema [Recovered/Resolved]
  - Skin burning sensation [Recovered/Resolved]
  - Erythema [Recovered/Resolved]
  - Vulvovaginal pain [Recovered/Resolved]

NARRATIVE: CASE EVENT DATE: 20190614
